FAERS Safety Report 12837162 (Version 4)
Quarter: 2017Q1

REPORT INFORMATION
  Report Type: Spontaneous
  Country: US (occurrence: US)
  Receive Date: 20161011
  Receipt Date: 20170314
  Transmission Date: 20170428
  Serious: No
  Sender: FDA-Public Use
  Company Number: US-009507513-1609USA014333

PATIENT
  Age: 33 Year
  Sex: Female
  Weight: 71.66 kg

DRUGS (5)
  1. FOLLISTIM [Suspect]
     Active Substance: FOLLITROPIN
     Indication: UTERINE DISORDER
     Dosage: UNK UNK, UNKNOWN
     Route: 065
     Dates: start: 201605
  2. VIAGRA [Concomitant]
     Active Substance: SILDENAFIL CITRATE
     Indication: PRODUCT USED FOR UNKNOWN INDICATION
  3. FOLLISTIM [Suspect]
     Active Substance: FOLLITROPIN
     Dosage: UNK, UNKNOWN
     Route: 065
     Dates: start: 201610
  4. FOLLISTIM [Suspect]
     Active Substance: FOLLITROPIN
     Indication: OVULATION INDUCTION
     Dosage: 100 -150 IU PER DAY UP TO 200IU
     Route: 058
     Dates: start: 20160911, end: 20161007
  5. DELESTROGEN [Concomitant]
     Active Substance: ESTRADIOL VALERATE

REACTIONS (2)
  - Drug prescribing error [Unknown]
  - Drug ineffective [Recovered/Resolved]

NARRATIVE: CASE EVENT DATE: 20160911
